FAERS Safety Report 22123259 (Version 1)
Quarter: 2023Q1

REPORT INFORMATION
  Report Type: Spontaneous
  Country: NL (occurrence: NL)
  Receive Date: 20230322
  Receipt Date: 20230322
  Transmission Date: 20230417
  Serious: Yes (Other)
  Sender: FDA-Public Use
  Company Number: NL-LRB-00870375

PATIENT
  Sex: Female

DRUGS (4)
  1. AMLODIPINE [Suspect]
     Active Substance: AMLODIPINE BESYLATE
     Indication: Product used for unknown indication
     Dosage: 10 MILLIGRAM, ONCE A DAY
     Route: 065
     Dates: start: 20230224, end: 20230224
  2. METFORMIN HYDROCHLORIDE [Suspect]
     Active Substance: METFORMIN HYDROCHLORIDE
     Indication: Product used for unknown indication
     Dosage: 500 MILLIGRAM, TWO TIMES A DAY ( 2XPER DAG 1 TABLET 7:00 IN 8:00 UUR)
     Route: 065
     Dates: start: 20230224, end: 20230224
  3. SPIRONOLACTONE [Suspect]
     Active Substance: SPIRONOLACTONE
     Indication: Product used for unknown indication
     Dosage: 25 MILLIGRAM, ONCE A DAY
     Route: 065
     Dates: start: 20230224, end: 20230224
  4. DOXAZOSIN MESYLATE [Suspect]
     Active Substance: DOXAZOSIN MESYLATE
     Indication: Product used for unknown indication
     Dosage: 8 MILLIGRAM, ONCE A DAY ( 1X DAILY 1 TABLET)
     Route: 065
     Dates: start: 20230224, end: 20230224

REACTIONS (4)
  - Hypotension [Recovering/Resolving]
  - Nausea [Recovered/Resolved]
  - Drug dispensed to wrong patient [Unknown]
  - Accidental exposure to product [Unknown]
